FAERS Safety Report 4796363-8 (Version None)
Quarter: 2005Q4

REPORT INFORMATION
  Report Type: 
  Country: None (occurrence: None)
  Receive Date: 20051007
  Receipt Date: 20050926
  Transmission Date: 20060501
  Serious: Yes (Hospitalization)
  Sender: FDA-Public Use
  Company Number: DEWYE885205AUG05

PATIENT
  Age: 17 Year
  Sex: Female

DRUGS (1)
  1. LEIOS (LEVONORGESTREL/ETHINYL ESTRADIOL, TABLET, 0) [Suspect]
     Indication: CONTRACEPTION
     Dosage: 1 TABLET; ORAL
     Route: 048
     Dates: start: 20050401

REACTIONS (3)
  - ASTHENIA [None]
  - FATIGUE [None]
  - HEPATITIS [None]
